FAERS Safety Report 25183577 (Version 1)
Quarter: 2025Q2

REPORT INFORMATION
  Report Type: Spontaneous
  Country: US (occurrence: US)
  Receive Date: 20250410
  Receipt Date: 20250410
  Transmission Date: 20250716
  Serious: Yes (Other)
  Sender: SANOFI AVENTIS
  Company Number: US-SA-2025SA100897

PATIENT
  Age: 65 Year
  Sex: Female

DRUGS (9)
  1. DUPIXENT [Suspect]
     Active Substance: DUPILUMAB
     Indication: Asthma
     Dosage: 300 MG, QOW
     Route: 058
  2. ACYCLOVIR [Concomitant]
     Active Substance: ACYCLOVIR
  3. POMALYST [Concomitant]
     Active Substance: POMALIDOMIDE
  4. XARELTO [Concomitant]
     Active Substance: RIVAROXABAN
  5. LEVALBUTEROL [Concomitant]
     Active Substance: LEVALBUTEROL
  6. AZITHROMYCIN [Concomitant]
     Active Substance: AZITHROMYCIN
  7. MONTELUKAST [Concomitant]
     Active Substance: MONTELUKAST
  8. PREDNISONE [Concomitant]
     Active Substance: PREDNISONE
  9. SPIRIVA RESPIMAT [Concomitant]
     Active Substance: TIOTROPIUM BROMIDE

REACTIONS (5)
  - Plasma cell myeloma [Unknown]
  - Pneumonia [Unknown]
  - Sleep disorder due to a general medical condition [Unknown]
  - Asthma [Unknown]
  - Dyspnoea [Unknown]

NARRATIVE: CASE EVENT DATE: 20250101
